FAERS Safety Report 7569722-8 (Version None)
Quarter: 2011Q2

REPORT INFORMATION
  Report Type: 
  Country: None (occurrence: None)
  Receive Date: 20110617
  Receipt Date: 20110609
  Transmission Date: 20111010
  Serious: Yes (Hospitalization)
  Sender: FDA-Public Use
  Company Number: WAES 1106USA01085

PATIENT
  Age: 38 Year
  Sex: Male
  Weight: 75.7507 kg

DRUGS (6)
  1. LOVENOX [Concomitant]
  2. RITALIN [Concomitant]
  3. HEPARIN [Concomitant]
  4. DECADRON [Suspect]
     Dosage: /PO
     Route: 048
     Dates: start: 20101020
  5. CRIZOTINIB [Suspect]
     Indication: NON-SMALL CELL LUNG CANCER
     Dosage: 250 MG/BID/PO
     Route: 048
     Dates: start: 20090714, end: 20110411
  6. KEPPRA [Concomitant]

REACTIONS (2)
  - PNEUMOCYSTIS JIROVECI PNEUMONIA [None]
  - PNEUMONIA PNEUMOCOCCAL [None]
